FAERS Safety Report 8588253-X (Version None)
Quarter: 2012Q3

REPORT INFORMATION
  Report Type: 
  Country: None (occurrence: None)
  Receive Date: 20120813
  Receipt Date: 20120801
  Transmission Date: 20120928
  Serious: Yes (Hospitalization)
  Sender: FDA-Public Use
  Company Number: US-BAYER-200827196NA

PATIENT
  Age: 43 Year
  Sex: Female
  Weight: 72.273 kg

DRUGS (3)
  1. YAZ [Suspect]
     Indication: CONTRACEPTION
     Dosage: 1 TAB/DAY
     Route: 048
     Dates: start: 20080415, end: 20080619
  2. VALTREX [Concomitant]
     Dosage: 500 MG, BID
     Route: 048
  3. LEVOXYL [Concomitant]
     Dosage: 75 MCG/24HR, QID
     Route: 048

REACTIONS (2)
  - PULMONARY EMBOLISM [None]
  - DEEP VEIN THROMBOSIS [None]
